FAERS Safety Report 10912082 (Version 1)
Quarter: 2015Q1

REPORT INFORMATION
  Report Type: Spontaneous
  Country: FR (occurrence: None)
  Receive Date: 20150309
  Receipt Date: 20150309
  Transmission Date: 20150721
  Serious: Yes (Hospitalization)
  Sender: FDA-Public Use
  Company Number: PR 5394

PATIENT
  Age: 70 Year
  Sex: Male

DRUGS (1)
  1. COSOPT [Suspect]
     Active Substance: DORZOLAMIDE HYDROCHLORIDE\TIMOLOL MALEATE
     Dates: start: 2009, end: 2012

REACTIONS (4)
  - Eye irritation [None]
  - Ocular discomfort [None]
  - Glaucoma [None]
  - Vertigo [None]

NARRATIVE: CASE EVENT DATE: 2009
